FAERS Safety Report 7075448-X (Version None)
Quarter: 2010Q4

REPORT INFORMATION
  Report Type: 
  Country: None (occurrence: None)
  Receive Date: 20101030
  Receipt Date: 20100914
  Transmission Date: 20110411
  Serious: No
  Sender: FDA-Public Use
  Company Number: US-WYE-H17594710

PATIENT
  Sex: Female
  Weight: 127.12 kg

DRUGS (1)
  1. PRISTIQ [Suspect]
     Indication: POST-TRAUMATIC STRESS DISORDER
     Dates: start: 20100801, end: 20100801

REACTIONS (4)
  - CONDITION AGGRAVATED [None]
  - HEADACHE [None]
  - TINNITUS [None]
  - UNEVALUABLE EVENT [None]
